FAERS Safety Report 5295425-9 (Version None)
Quarter: 2007Q1

REPORT INFORMATION
  Report Type: 
  Country: None (occurrence: None)
  Receive Date: 20070201
  Receipt Date: 20061024
  Transmission Date: 20070707
  Serious: No
  Sender: FDA-Public Use
  Company Number: 2006PV023757

PATIENT
  Age: 55 Year
  Sex: Female
  Weight: 112.0385 kg

DRUGS (4)
  1. BYETTA [Suspect]
     Indication: DIABETES MELLITUS NON-INSULIN-DEPENDENT
     Dosage: 5 MCG;BID;SC
     Route: 058
     Dates: start: 20060914
  2. MIRALAX [Concomitant]
  3. PREDIEM [Concomitant]
  4. FENOPROFEN CA [Concomitant]

REACTIONS (5)
  - BLOOD GLUCOSE DECREASED [None]
  - CHEST PAIN [None]
  - CHILLS [None]
  - CONSTIPATION [None]
  - DIZZINESS [None]
